FAERS Safety Report 8555499-6 (Version None)
Quarter: 2012Q3

REPORT INFORMATION
  Report Type: 
  Country: None (occurrence: None)
  Receive Date: 20120731
  Receipt Date: 20120105
  Transmission Date: 20120928
  Serious: No
  Sender: FDA-Public Use
  Company Number: US-ASTRAZENECA-2011SE10727

PATIENT
  Age: 55 Year
  Sex: Male
  Weight: 71.7 kg

DRUGS (15)
  1. SEROQUEL [Suspect]
     Route: 048
     Dates: start: 20101101
  2. SEROQUEL [Suspect]
     Route: 048
  3. FISH OIL [Concomitant]
     Route: 048
  4. SEROQUEL [Suspect]
     Indication: TACHYPHRENIA
     Route: 048
     Dates: start: 20100901
  5. SEROQUEL [Suspect]
     Route: 048
  6. SEROQUEL [Suspect]
     Route: 048
  7. SEROQUEL [Suspect]
     Route: 048
     Dates: start: 20101101
  8. SEROQUEL [Suspect]
     Indication: ILL-DEFINED DISORDER
     Route: 048
     Dates: start: 20100901
  9. SEROQUEL [Suspect]
     Route: 048
  10. SEROQUEL [Suspect]
     Route: 048
  11. VITAMIN D [Concomitant]
     Route: 048
  12. SEROQUEL [Suspect]
     Route: 048
  13. SEROQUEL [Suspect]
     Route: 048
     Dates: start: 20100901
  14. SEROQUEL [Suspect]
     Route: 048
     Dates: start: 20101101
  15. VITAMIN B COMPLEX CAP [Concomitant]
     Route: 048

REACTIONS (4)
  - OFF LABEL USE [None]
  - DYSKINESIA [None]
  - FORMICATION [None]
  - DIZZINESS [None]
